FAERS Safety Report 5324232-3 (Version None)
Quarter: 2007Q2

REPORT INFORMATION
  Report Type: 
  Country: None (occurrence: None)
  Receive Date: 20070514
  Receipt Date: 20070508
  Transmission Date: 20071010
  Serious: Yes (Other)
  Sender: FDA-Public Use
  Company Number: PHBS2007JP07256

PATIENT
  Age: 32 Year
  Sex: Female

DRUGS (9)
  1. SIMULECT [Suspect]
     Indication: RENAL AND PANCREAS TRANSPLANT
     Dosage: 20 MG, UNK
     Route: 042
  2. PROGRAF [Suspect]
     Indication: RENAL AND PANCREAS TRANSPLANT
     Route: 048
  3. ENDOXAN [Suspect]
     Indication: RENAL AND PANCREAS TRANSPLANT
     Route: 065
  4. CELLCEPT [Suspect]
     Indication: RENAL AND PANCREAS TRANSPLANT
     Route: 048
  5. PREDNISOLONE [Suspect]
     Indication: RENAL AND PANCREAS TRANSPLANT
     Route: 065
  6. ANTICOAGULANTS [Concomitant]
  7. ANTIBIOTICS [Concomitant]
  8. ANTIFUNGALS [Concomitant]
  9. ANTIVIRALS NOS [Concomitant]

REACTIONS (2)
  - BONE MARROW FAILURE [None]
  - RENAL IMPAIRMENT [None]
